FAERS Safety Report 21872313 (Version 4)
Quarter: 2023Q2

REPORT INFORMATION
  Report Type: Spontaneous
  Country: US (occurrence: US)
  Receive Date: 20230117
  Receipt Date: 20230628
  Transmission Date: 20230722
  Serious: No
  Sender: FDA-Public Use
  Company Number: US-PFIZER INC-PV202300008929

PATIENT
  Age: 84 Year
  Sex: Male
  Weight: 60.78 kg

DRUGS (1)
  1. VYNDAMAX [Suspect]
     Active Substance: TAFAMIDIS
     Indication: Cardiac amyloidosis
     Dosage: 61 MG

REACTIONS (4)
  - Malaise [Unknown]
  - Intentional product misuse [Unknown]
  - Hypoacusis [Unknown]
  - Back disorder [Unknown]
